FAERS Safety Report 11436555 (Version 1)
Quarter: 2015Q3

REPORT INFORMATION
  Report Type: Spontaneous
  Country: US (occurrence: US)
  Receive Date: 20150821
  Receipt Date: 20150821
  Transmission Date: 20151125
  Serious: No
  Sender: FDA-Public Use
  Company Number: US-ELI_LILLY_AND_COMPANY-US201406002336

PATIENT
  Sex: Female

DRUGS (3)
  1. HUMULIN N [Suspect]
     Active Substance: INSULIN HUMAN
     Indication: TYPE 2 DIABETES MELLITUS
     Dosage: 20 U, BID
     Route: 065
     Dates: start: 2012
  2. INSULIN HUMAN [Suspect]
     Active Substance: INSULIN HUMAN
     Indication: TYPE 2 DIABETES MELLITUS
     Dosage: UNK
     Route: 065
  3. PREDNISONE. [Concomitant]
     Active Substance: PREDNISONE

REACTIONS (8)
  - Cataract [Unknown]
  - Blood glucose increased [Unknown]
  - Hyperglycaemia [Unknown]
  - Osteoarthritis [Unknown]
  - Incorrect product storage [Unknown]
  - Weight decreased [Unknown]
  - Visual acuity reduced [Unknown]
  - Hypoglycaemia [Unknown]

NARRATIVE: CASE EVENT DATE: 2012
